FAERS Safety Report 6207201-0 (Version None)
Quarter: 2009Q2

REPORT INFORMATION
  Report Type: 
  Country: None (occurrence: None)
  Receive Date: 20090522
  Receipt Date: 20080620
  Transmission Date: 20091009
  Serious: Yes (Other)
  Sender: FDA-Public Use
  Company Number: 49786

PATIENT
  Age: 10 Month
  Sex: Male

DRUGS (1)
  1. PAMIDRONATE DISODIUM [Suspect]
     Dosage: 2.5MG/50ML IV AT A RATE OF 15ML/HOUR
     Route: 042
     Dates: start: 20080620

REACTIONS (1)
  - EXTRAVASATION [None]
